FAERS Safety Report 5743124-9 (Version None)
Quarter: 2008Q2

REPORT INFORMATION
  Report Type: 
  Country: None (occurrence: None)
  Receive Date: 20080519
  Receipt Date: 20080507
  Transmission Date: 20081010
  Serious: Yes (Other)
  Sender: FDA-Public Use
  Company Number: US-ELI_LILLY_AND_COMPANY-US200805002482

PATIENT
  Sex: Female

DRUGS (3)
  1. EVISTA [Suspect]
     Indication: OSTEOPOROSIS
     Dosage: 60 MG, DAILY (1/D)
     Dates: start: 20061201
  2. TRAZODONE HCL [Concomitant]
     Indication: INSOMNIA
     Dosage: UNK, EACH EVENING
  3. BUSPAR [Concomitant]
     Indication: ANXIETY
     Dosage: UNK, DAILY (1/D)

REACTIONS (1)
  - ENDOMETRIAL DISORDER [None]
